FAERS Safety Report 8852579 (Version 2)
Quarter: 2013Q1

REPORT INFORMATION
  Report Type: Spontaneous
  Country: GB (occurrence: GB)
  Receive Date: 20121022
  Receipt Date: 20130129
  Transmission Date: 20140127
  Serious: Yes (Hospitalization, Other)
  Sender: FDA-Public Use
  Company Number: PHFR2012GB005498

PATIENT
  Age: 20 Year
  Sex: Female
  Weight: 80 kg

DRUGS (6)
  1. CLOZARIL [Suspect]
     Indication: SCHIZOPHRENIA
     Dosage: 15 DF,(15 TABLETS)
     Route: 048
     Dates: start: 20121015, end: 20121015
  2. CLOZARIL [Suspect]
     Dosage: UNK UKN, UNK
     Route: 048
     Dates: start: 20121025
  3. AMISULPRIDE [Concomitant]
     Indication: SCHIZOPHRENIA
     Dosage: 100 MG, DAILY
     Route: 048
     Dates: end: 20121008
  4. SERTRALINE [Concomitant]
     Indication: DEPRESSION
     Dosage: 100 MG, DAILY
     Route: 048
     Dates: end: 20121008
  5. SENNA [Concomitant]
     Indication: CONSTIPATION
     Dosage: 2 DF, DAILY
     Route: 048
  6. MULTIVITAMINS [Concomitant]
     Indication: PROPHYLAXIS
     Dosage: 1 DF, DAILY
     Route: 048

REACTIONS (4)
  - Suicidal ideation [Unknown]
  - Salivary hypersecretion [Recovering/Resolving]
  - Somnolence [Recovering/Resolving]
  - Overdose [Recovered/Resolved]
